FAERS Safety Report 7833430-6 (Version None)
Quarter: 2011Q4

REPORT INFORMATION
  Report Type: 
  Country: None (occurrence: None)
  Receive Date: 20111024
  Receipt Date: 20111013
  Transmission Date: 20120403
  Serious: Yes (Other)
  Sender: FDA-Public Use
  Company Number: ES-ELI_LILLY_AND_COMPANY-ES201110003365

PATIENT
  Sex: Female
  Weight: 78 kg

DRUGS (6)
  1. FORTEO [Suspect]
     Indication: OSTEOPOROSIS
     Dosage: 20 UG, QD
     Route: 058
     Dates: start: 20110614
  2. AREMIS [Concomitant]
     Indication: DEPRESSION
     Dosage: UNK, QD
     Route: 048
  3. ACETAMINOPHEN [Concomitant]
     Indication: ANALGESIC THERAPY
     Dosage: 1 G, PRN
  4. ARICEPT [Concomitant]
     Indication: DEMENTIA ALZHEIMER'S TYPE
     Dosage: UNK, QD
     Route: 048
  5. ALPRAZOLAM [Concomitant]
     Indication: DEMENTIA ALZHEIMER'S TYPE
     Dosage: 0.5 MG, QD
     Route: 048
  6. XALATAN [Concomitant]
     Indication: EYE DISORDER
     Dosage: UNK, QD

REACTIONS (1)
  - CEREBROVASCULAR ACCIDENT [None]
